FAERS Safety Report 22869543 (Version 2)
Quarter: 2025Q2

REPORT INFORMATION
  Report Type: Spontaneous
  Country: FR (occurrence: FR)
  Receive Date: 20230826
  Receipt Date: 20250505
  Transmission Date: 20250716
  Serious: Yes (Hospitalization, Other)
  Sender: AUROBINDO
  Company Number: FR-PIRAMAL PHARMA LIMITED-2023-PPL-000215

PATIENT

DRUGS (21)
  1. ASPIRIN [Suspect]
     Active Substance: ASPIRIN
     Indication: Product used for unknown indication
     Route: 012
  2. KETOPROFEN [Suspect]
     Active Substance: KETOPROFEN
     Indication: Product used for unknown indication
     Dosage: 200 MILLIGRAM, ONCE A DAY(50 MG, QID)
     Route: 012
  3. LIDOCAINE [Suspect]
     Active Substance: LIDOCAINE
     Indication: Product used for unknown indication
     Route: 012
  4. LIDOCAINE [Suspect]
     Active Substance: LIDOCAINE
     Route: 012
  5. LIDOCAINE [Suspect]
     Active Substance: LIDOCAINE
     Route: 012
  6. LIDOCAINE [Suspect]
     Active Substance: LIDOCAINE
     Route: 012
  7. ACETAMINOPHEN [Suspect]
     Active Substance: ACETAMINOPHEN
     Indication: Product used for unknown indication
     Route: 012
  8. ACETAMINOPHEN [Suspect]
     Active Substance: ACETAMINOPHEN
     Dosage: 4 GRAM, ONCE A DAY(1 G, QID)
     Route: 012
  9. EPINEPHRINE [Suspect]
     Active Substance: EPINEPHRINE
     Indication: Product used for unknown indication
     Route: 012
  10. EPINEPHRINE [Suspect]
     Active Substance: EPINEPHRINE
     Route: 012
  11. ENOXAPARIN SODIUM [Suspect]
     Active Substance: ENOXAPARIN SODIUM
     Indication: Product used for unknown indication
     Dosage: 40 MILLIGRAM, ONCE A DAY(40 MILLIGRAM/24 HOUR)
     Route: 012
  12. MORPHINE [Suspect]
     Active Substance: MORPHINE
     Indication: Product used for unknown indication
     Dosage: 8 MILLIGRAM, ONCE A DAY(2 MILLIGRAM, QID)
     Route: 012
  13. NEFOPAM [Suspect]
     Active Substance: NEFOPAM
     Indication: Product used for unknown indication
     Dosage: 160 MILLIGRAM, ONCE A DAY(40 MILLIGRAM, QID)
     Route: 012
  14. ROPIVACAINE HYDROCHLORIDE [Suspect]
     Active Substance: ROPIVACAINE HYDROCHLORIDE
     Indication: Product used for unknown indication
     Route: 012
  15. ROPIVACAINE HYDROCHLORIDE [Suspect]
     Active Substance: ROPIVACAINE HYDROCHLORIDE
     Route: 012
  16. ROPIVACAINE HYDROCHLORIDE [Suspect]
     Active Substance: ROPIVACAINE HYDROCHLORIDE
     Route: 012
  17. ROPIVACAINE HYDROCHLORIDE [Suspect]
     Active Substance: ROPIVACAINE HYDROCHLORIDE
     Route: 012
  18. SUFENTANIL [Suspect]
     Active Substance: SUFENTANIL
     Indication: Product used for unknown indication
     Route: 012
  19. SUFENTANIL [Suspect]
     Active Substance: SUFENTANIL
     Route: 012
  20. SUFENTANIL [Suspect]
     Active Substance: SUFENTANIL
     Route: 012
  21. SUFENTANIL [Suspect]
     Active Substance: SUFENTANIL
     Route: 012

REACTIONS (2)
  - Foetal heart rate abnormal [Unknown]
  - Foetal exposure during pregnancy [Unknown]
